FAERS Safety Report 5180242-0 (Version None)
Quarter: 2006Q4

REPORT INFORMATION
  Report Type: 
  Country: None (occurrence: None)
  Receive Date: 20061219
  Receipt Date: 20060914
  Transmission Date: 20070319
  Serious: No
  Sender: FDA-Public Use
  Company Number: US-AMGEN-KDL193748

PATIENT
  Sex: Female

DRUGS (2)
  1. ENBREL [Suspect]
     Indication: RHEUMATOID ARTHRITIS
     Route: 058
     Dates: start: 20051107
  2. IMURAN [Concomitant]
     Dates: start: 19830101

REACTIONS (2)
  - CERVIX NEOPLASM [None]
  - VULVOVAGINAL MYCOTIC INFECTION [None]
